FAERS Safety Report 5607986-8 (Version None)
Quarter: 2008Q1

REPORT INFORMATION
  Report Type: 
  Country: None (occurrence: None)
  Receive Date: 20080130
  Receipt Date: 20080125
  Transmission Date: 20080703
  Serious: Yes (Other)
  Sender: FDA-Public Use
  Company Number: B0499035A

PATIENT
  Age: 49 Year
  Sex: Female

DRUGS (1)
  1. ZINACEF [Suspect]
     Indication: ANTIBIOTIC PROPHYLAXIS
     Route: 042
     Dates: start: 20071121, end: 20071121

REACTIONS (1)
  - ANAPHYLACTIC SHOCK [None]
